FAERS Safety Report 5259693-1 (Version None)
Quarter: 2007Q1

REPORT INFORMATION
  Report Type: 
  Country: None (occurrence: None)
  Receive Date: 20070309
  Receipt Date: 20070228
  Transmission Date: 20070707
  Serious: Yes (Other)
  Sender: FDA-Public Use
  Company Number: PHHO2007GB02197

PATIENT
  Sex: Male
  Weight: 103.7 kg

DRUGS (11)
  1. VALSARTAN [Suspect]
     Dosage: LEVEL 1
     Route: 048
     Dates: start: 20030130
  2. VALSARTAN [Suspect]
     Dosage: LEVEL 2
     Route: 048
     Dates: start: 20030214, end: 20050124
  3. ATORVASTATIN [Concomitant]
  4. BENDROFLUAZIDE [Concomitant]
  5. AMLODIPINE [Concomitant]
  6. BISOPROLOL [Concomitant]
  7. ASPIRIN [Concomitant]
  8. NITROGLYCERIN [Concomitant]
  9. NATEGLINIDE [Suspect]
     Indication: GLUCOSE TOLERANCE IMPAIRED
     Dosage: LEVEL 1
     Route: 048
     Dates: start: 20030130
  10. NATEGLINIDE [Suspect]
     Dosage: LEVEL 2
     Route: 048
     Dates: start: 20030214, end: 20050124
  11. NATEGLINIDE [Suspect]
     Dosage: NO TREATMENT
     Dates: start: 20050125

REACTIONS (7)
  - ERYTHEMA [None]
  - FOLLICLE CENTRE LYMPHOMA, FOLLICULAR GRADE I, II, III STAGE IV [None]
  - MASS EXCISION [None]
  - NEOPLASM MALIGNANT [None]
  - NEOPLASM PROGRESSION [None]
  - NODULE [None]
  - SKIN IRRITATION [None]
